FAERS Safety Report 4474720-7 (Version None)
Quarter: 2004Q4

REPORT INFORMATION
  Report Type: 
  Country: None (occurrence: None)
  Receive Date: 20041012
  Receipt Date: 20040928
  Transmission Date: 20050328
  Serious: Yes (Other)
  Sender: FDA-Public Use
  Company Number: 2004073743

PATIENT
  Age: 69 Year
  Sex: Female

DRUGS (4)
  1. NORVASC [Suspect]
     Indication: HYPERTENSION
     Dosage: 5 MG (5 MG, 1 IN 1 D), ORAL
     Route: 048
  2. DIHYDROTACHYSTEROL [Suspect]
     Indication: HYPOPARATHYROIDISM
     Dosage: ORAL
     Route: 048
     Dates: end: 20040715
  3. CALCIUM (CALCIUM) [Suspect]
     Indication: HYPOPARATHYROIDISM
     Dosage: 100 MG, ORAL
     Route: 048
     Dates: end: 20040715
  4. LEVOTHYROXINE SODIUM [Concomitant]

REACTIONS (9)
  - ANOREXIA [None]
  - ASTHENIA [None]
  - DYSGEUSIA [None]
  - DYSPNOEA [None]
  - GENERAL PHYSICAL HEALTH DETERIORATION [None]
  - HYPERCALCAEMIA [None]
  - HYPERTENSION [None]
  - NAUSEA [None]
  - RENAL FAILURE ACUTE [None]
